FAERS Safety Report 8395495-5 (Version None)
Quarter: 2012Q2

REPORT INFORMATION
  Report Type: 
  Country: None (occurrence: None)
  Receive Date: 20120530
  Receipt Date: 20110509
  Transmission Date: 20120825
  Serious: No
  Sender: FDA-Public Use
  Company Number: US-GLAXOSMITHKLINE-A0926608A

PATIENT
  Age: 46 Year
  Sex: Female

DRUGS (3)
  1. ROBITUSSIN AC [Concomitant]
  2. VENTOLIN [Suspect]
     Indication: BRONCHITIS
     Dosage: 2PUFF SIX TIMES PER DAY
     Route: 055
     Dates: start: 20110502
  3. BIAXIN XL [Concomitant]

REACTIONS (2)
  - DRUG INEFFECTIVE [None]
  - DYSPNOEA [None]
